FAERS Safety Report 19150942 (Version 1)
Quarter: 2021Q2

REPORT INFORMATION
  Report Type: Spontaneous
  Country: US (occurrence: US)
  Receive Date: 20210419
  Receipt Date: 20210419
  Transmission Date: 20210717
  Serious: No
  Sender: FDA-Public Use
  Company Number: US-SA-2021SA125206

PATIENT
  Age: 34 Year
  Sex: Male

DRUGS (1)
  1. DUPIXENT [Suspect]
     Active Substance: DUPILUMAB
     Indication: DERMATITIS
     Dosage: 300 MG/ML, QOW
     Route: 058
     Dates: start: 20190913

REACTIONS (5)
  - Sleep disorder [Unknown]
  - Product use in unapproved indication [Unknown]
  - Dermatitis [Unknown]
  - Rash [Unknown]
  - Discomfort [Unknown]
